FAERS Safety Report 6153424-9 (Version None)
Quarter: 2009Q2

REPORT INFORMATION
  Report Type: 
  Country: None (occurrence: None)
  Receive Date: 20090409
  Receipt Date: 20090409
  Transmission Date: 20091009
  Serious: Yes (Other)
  Sender: FDA-Public Use
  Company Number: None

PATIENT
  Sex: Female
  Weight: 56.246 kg

DRUGS (2)
  1. TAXOTERE [Suspect]
     Indication: BREAST CANCER
     Dosage: 120 MG EVERY 3 WEEKS IV DRIP
     Route: 041
     Dates: start: 20090317, end: 20090407
  2. CARBOPLATIN [Suspect]
     Dosage: 465 MG EVERY 3 WEEKS IV DRIP
     Route: 041

REACTIONS (3)
  - DEHYDRATION [None]
  - NAUSEA [None]
  - VOMITING [None]
